FAERS Safety Report 9972473 (Version 1)
Quarter: 2014Q1

REPORT INFORMATION
  Report Type: Spontaneous
  Country: US (occurrence: None)
  Receive Date: 20140305
  Receipt Date: 20140305
  Transmission Date: 20141002
  Serious: Yes (Hospitalization)
  Sender: FDA-Public Use
  Company Number: None

PATIENT
  Age: 30 Year
  Sex: Female

DRUGS (22)
  1. CIMZIA 200MG [Suspect]
     Dosage: Q4WEEKS
     Route: 058
  2. ATENOLOL [Concomitant]
  3. IMURAN [Concomitant]
  4. CYMBALTA [Concomitant]
  5. PREDNISONE [Concomitant]
  6. TOPAMAX [Concomitant]
  7. WARFARIN [Concomitant]
  8. SEROQUEL [Concomitant]
  9. AMITRIPTYLINE [Concomitant]
  10. POTASSIUM [Concomitant]
  11. CALCIUM [Concomitant]
  12. B-12 [Concomitant]
  13. ZOFRAN [Concomitant]
  14. LEVSIN [Concomitant]
  15. BENTYL [Concomitant]
  16. ATIVAN [Concomitant]
  17. NORCO [Concomitant]
  18. RELPAX [Concomitant]
  19. CICLOPIROX [Concomitant]
  20. NYSTATIN [Concomitant]
  21. ALLOPURINOL [Concomitant]
  22. KETOCONAZOLE [Concomitant]

REACTIONS (1)
  - Pancreatitis [None]
